FAERS Safety Report 5113447-5 (Version None)
Quarter: 2006Q3

REPORT INFORMATION
  Report Type: 
  Country: None (occurrence: None)
  Receive Date: 20060920
  Receipt Date: 20060905
  Transmission Date: 20061208
  Serious: Yes (Death)
  Sender: FDA-Public Use
  Company Number: 2006001744

PATIENT
  Age: 68 Year
  Sex: Male

DRUGS (12)
  1. TARCEVA [Suspect]
     Dosage: (QD), ORAL
     Route: 048
     Dates: start: 20060729, end: 20060730
  2. ACARBOSE [Suspect]
  3. VFEND [Suspect]
  4. PRAVASTATIN [Suspect]
  5. RAMIPRIL [Suspect]
  6. ISOPTIN [Concomitant]
  7. ALDACTONE [Concomitant]
  8. LASIX [Concomitant]
  9. ALLOPURINOL [Concomitant]
  10. ADANCOR (NICORANDIL) [Concomitant]
  11. NITRIDERM (GLYCERYL TRINITRATE) [Concomitant]
  12. BRICANYL [Concomitant]

REACTIONS (5)
  - CARDIAC DISORDER [None]
  - CARDIO-RESPIRATORY ARREST [None]
  - DIARRHOEA [None]
  - DRUG INTERACTION [None]
  - INFARCTION [None]
